FAERS Safety Report 25606356 (Version 1)
Quarter: 2025Q3

REPORT INFORMATION
  Report Type: Report from Study
  Country: US (occurrence: US)
  Receive Date: 20250725
  Receipt Date: 20250725
  Transmission Date: 20251020
  Serious: Yes (Other)
  Sender: SUNOVION
  Company Number: US-SMPA-2025SPA009320

PATIENT

DRUGS (11)
  1. ORGOVYX [Suspect]
     Active Substance: RELUGOLIX
     Indication: Prostate cancer
     Route: 048
     Dates: start: 20250529, end: 20250529
  2. ORGOVYX [Suspect]
     Active Substance: RELUGOLIX
     Route: 048
     Dates: start: 20250530
  3. ACETAMINOPHEN [Concomitant]
     Active Substance: ACETAMINOPHEN
     Route: 065
  4. ALDARA [Concomitant]
     Active Substance: IMIQUIMOD
     Route: 061
  5. FAMOTIDINE [Concomitant]
     Active Substance: FAMOTIDINE
     Route: 065
  6. ACETAMINOPHEN\HYDROCODONE [Concomitant]
     Active Substance: ACETAMINOPHEN\HYDROCODONE
     Route: 065
  7. IBUPROFEN [Concomitant]
     Active Substance: IBUPROFEN
     Route: 065
  8. LIDODERM [Concomitant]
     Active Substance: LIDOCAINE
     Route: 065
  9. PREDNISONE [Concomitant]
     Active Substance: PREDNISONE
     Route: 065
  10. SENNA [Concomitant]
     Active Substance: SENNOSIDES
     Route: 065
  11. ZYTIGA [Concomitant]
     Active Substance: ABIRATERONE ACETATE
     Route: 065

REACTIONS (1)
  - Large intestine perforation [Unknown]
